FAERS Safety Report 10642490 (Version 1)
Quarter: 2014Q4

REPORT INFORMATION
  Report Type: Spontaneous
  Country: US (occurrence: None)
  Receive Date: 20141121
  Receipt Date: 20141121
  Transmission Date: 20150529
  Serious: No
  Sender: FDA-Public Use
  Company Number: 163-10004-14072725

PATIENT
  Age: 60 Year
  Sex: Male

DRUGS (6)
  1. METOPROLOL [Concomitant]
     Active Substance: METOPROLOL
  2. METFORMIN [Concomitant]
     Active Substance: METFORMIN HYDROCHLORIDE
  3. HCTZ (HYDROCHLORATHIAZIDE) [Concomitant]
  4. OTEZLA [Suspect]
     Active Substance: APREMILAST
     Indication: PSORIATIC ARTHROPATHY
     Route: 048
     Dates: start: 20140709
  5. DULOXETINE [Concomitant]
     Active Substance: DULOXETINE
  6. ISOSORBIDE [Concomitant]
     Active Substance: ISOSORBIDE

REACTIONS (5)
  - Dizziness [None]
  - Diarrhoea [None]
  - Abdominal pain upper [None]
  - Nausea [None]
  - Headache [None]

NARRATIVE: CASE EVENT DATE: 20140709
